FAERS Safety Report 16639172 (Version 1)
Quarter: 2019Q3

REPORT INFORMATION
  Report Type: Spontaneous
  Country: CA (occurrence: CA)
  Receive Date: 20190726
  Receipt Date: 20190726
  Transmission Date: 20191004
  Serious: Yes (Hospitalization)
  Sender: FDA-Public Use
  Company Number: CA-PFIZER INC-A207083

PATIENT
  Age: 20 Year
  Sex: Male

DRUGS (3)
  1. PAROXETINE. [Suspect]
     Active Substance: PAROXETINE
     Indication: MAJOR DEPRESSION
     Dosage: 20 MG, 1X/DAY
  2. PAROXETINE. [Suspect]
     Active Substance: PAROXETINE
     Dosage: 30 MG, 1X/DAY (INCREASED)
  3. SERTRALINE HCL [Suspect]
     Active Substance: SERTRALINE HYDROCHLORIDE
     Indication: MAJOR DEPRESSION
     Dosage: 50 MG, 1X/DAY

REACTIONS (2)
  - Rash maculo-papular [Recovered/Resolved]
  - Therapeutic product cross-reactivity [Recovered/Resolved]
